FAERS Safety Report 15939020 (Version 4)
Quarter: 2019Q2

REPORT INFORMATION
  Report Type: Spontaneous
  Country: US (occurrence: US)
  Receive Date: 20190208
  Receipt Date: 20190412
  Transmission Date: 20190711
  Serious: Yes (Other)
  Sender: FDA-Public Use
  Company Number: US-ASTRAZENECA-2018SF14790

PATIENT
  Sex: Female

DRUGS (39)
  1. PRILOSEC [Suspect]
     Active Substance: OMEPRAZOLE MAGNESIUM
     Indication: GASTROOESOPHAGEAL REFLUX DISEASE
     Route: 048
     Dates: start: 200204, end: 200207
  2. PRILOSEC OTC [Suspect]
     Active Substance: OMEPRAZOLE MAGNESIUM
     Indication: GASTROOESOPHAGEAL REFLUX DISEASE
     Route: 048
     Dates: start: 200204, end: 200207
  3. RANITIDINE. [Concomitant]
     Active Substance: RANITIDINE
  4. GENTAMICIN. [Concomitant]
     Active Substance: GENTAMICIN
  5. TOBRAMYCIN. [Concomitant]
     Active Substance: TOBRAMYCIN
  6. ALBUTEROL SULFATE. [Concomitant]
     Active Substance: ALBUTEROL SULFATE
  7. MAGNESIUM OXIDE. [Concomitant]
     Active Substance: MAGNESIUM OXIDE
  8. MELATONIN [Concomitant]
     Active Substance: MELATONIN
  9. NEXIUM [Suspect]
     Active Substance: ESOMEPRAZOLE MAGNESIUM
     Indication: GASTROOESOPHAGEAL REFLUX DISEASE
     Route: 048
     Dates: start: 20020604
  10. LABETALOL [Concomitant]
     Active Substance: LABETALOL\LABETALOL HYDROCHLORIDE
  11. TRIMOX [Concomitant]
     Active Substance: AMOXICILLIN
  12. GUAIFENEX [Concomitant]
     Active Substance: GUAIFENESIN\PHENYLEPHRINE\PHENYLPROPANOLAMINE
  13. VITAMIN C [Concomitant]
     Active Substance: ASCORBIC ACID
  14. BECONASE AQ [Concomitant]
     Active Substance: BECLOMETHASONE DIPROPIONATE MONOHYDRATE
  15. SINGULAIR [Concomitant]
     Active Substance: MONTELUKAST SODIUM
  16. PRILOSEC OTC [Suspect]
     Active Substance: OMEPRAZOLE MAGNESIUM
     Indication: GASTROOESOPHAGEAL REFLUX DISEASE
     Route: 048
     Dates: start: 20050101, end: 20070101
  17. NASONEX [Concomitant]
     Active Substance: MOMETASONE FUROATE
  18. BENZONATATE. [Concomitant]
     Active Substance: BENZONATATE
  19. KETEK [Concomitant]
     Active Substance: TELITHROMYCIN
  20. PRILOSEC [Suspect]
     Active Substance: OMEPRAZOLE MAGNESIUM
     Indication: GASTROOESOPHAGEAL REFLUX DISEASE
     Route: 048
     Dates: start: 20080107
  21. PRILOSEC [Suspect]
     Active Substance: OMEPRAZOLE MAGNESIUM
     Indication: GASTROOESOPHAGEAL REFLUX DISEASE
     Dosage: OMEPRAZOLE
     Route: 065
  22. VITAMIN D3 [Concomitant]
     Active Substance: CHOLECALCIFEROL
  23. NIACIN. [Concomitant]
     Active Substance: NIACIN
  24. CEFUROXIME. [Concomitant]
     Active Substance: CEFUROXIME
  25. NEXIUM [Suspect]
     Active Substance: ESOMEPRAZOLE MAGNESIUM
     Indication: GASTROOESOPHAGEAL REFLUX DISEASE
     Route: 048
     Dates: start: 200204, end: 200207
  26. NEXIUM [Suspect]
     Active Substance: ESOMEPRAZOLE MAGNESIUM
     Indication: GASTROOESOPHAGEAL REFLUX DISEASE
     Route: 048
     Dates: start: 20020521, end: 20020605
  27. LISINOPRIL. [Concomitant]
     Active Substance: LISINOPRIL
  28. MULTIVITAMINS [Concomitant]
     Active Substance: VITAMINS
  29. CEFOTAXIME [Concomitant]
     Active Substance: CEFOTAXIME SODIUM
  30. BENADRYL [Concomitant]
     Active Substance: DIPHENHYDRAMINE HYDROCHLORIDE
  31. LYSINE [Concomitant]
     Active Substance: LYSINE
  32. ZELNORM [Concomitant]
     Active Substance: TEGASEROD MALEATE
  33. AMPICILLIN [Concomitant]
     Active Substance: AMPICILLIN
  34. METHOCARBAMOL. [Concomitant]
     Active Substance: METHOCARBAMOL
  35. VENTOLIN [Concomitant]
     Active Substance: ALBUTEROL SULFATE
  36. PRILOSEC [Suspect]
     Active Substance: OMEPRAZOLE MAGNESIUM
     Indication: GASTROOESOPHAGEAL REFLUX DISEASE
     Route: 048
     Dates: start: 19980204, end: 19981004
  37. DIPHENHYDRAMINE. [Concomitant]
     Active Substance: DIPHENHYDRAMINE
  38. HYDROCODONE [Concomitant]
     Active Substance: HYDROCODONE
  39. PROAIR HFA [Concomitant]
     Active Substance: ALBUTEROL SULFATE

REACTIONS (2)
  - Chronic kidney disease [Not Recovered/Not Resolved]
  - Renal injury [Unknown]
